FAERS Safety Report 19657356 (Version 1)
Quarter: 2021Q3

REPORT INFORMATION
  Report Type: Spontaneous
  Country: FR (occurrence: FR)
  Receive Date: 20210804
  Receipt Date: 20210804
  Transmission Date: 20211014
  Serious: Yes (Hospitalization, Other)
  Sender: FDA-Public Use
  Company Number: NVSC2021FR169404

PATIENT
  Age: 71 Year
  Sex: Male

DRUGS (1)
  1. CYCLOSPORINE. [Suspect]
     Active Substance: CYCLOSPORINE
     Indication: RENAL TRANSPLANT
     Dosage: UNK, UNKNOWN
     Route: 048

REACTIONS (6)
  - Drug level increased [Recovered/Resolved]
  - Acute kidney injury [Recovered/Resolved]
  - Dose calculation error [Recovered/Resolved]
  - Accidental overdose [Recovered/Resolved]
  - Gastrointestinal disorder [Recovered/Resolved]
  - Nervous system disorder [Recovered/Resolved]
